FAERS Safety Report 8600675-7 (Version None)
Quarter: 2012Q3

REPORT INFORMATION
  Report Type: 
  Country: None (occurrence: None)
  Receive Date: 20120817
  Receipt Date: 20120807
  Transmission Date: 20120928
  Serious: Yes (Hospitalization)
  Sender: FDA-Public Use
  Company Number: DE-MILLENNIUM PHARMACEUTICALS, INC.-2012-05644

PATIENT

DRUGS (4)
  1. ACYCLOVIR [Concomitant]
     Dosage: UNK
     Dates: start: 20120413
  2. DEXAMETHASONE [Concomitant]
     Indication: MULTIPLE MYELOMA
     Dosage: UNK
     Dates: start: 20120416, end: 20120721
  3. PAMIDRONATE DISODIUM [Concomitant]
     Dosage: UNK
     Dates: start: 20120423
  4. VELCADE [Suspect]
     Indication: MULTIPLE MYELOMA
     Dosage: UNK
     Route: 065
     Dates: start: 20120416, end: 20120721

REACTIONS (2)
  - TACHYCARDIA [None]
  - DYSPNOEA [None]
